FAERS Safety Report 6480905-0 (Version None)
Quarter: 2009Q4

REPORT INFORMATION
  Report Type: 
  Country: None (occurrence: None)
  Receive Date: 20091208
  Receipt Date: 20091124
  Transmission Date: 20100525
  Serious: Yes (Other)
  Sender: FDA-Public Use
  Company Number: PHHY2009BR51421

PATIENT
  Age: 70 Year
  Sex: Female
  Weight: 64 kg

DRUGS (3)
  1. LUCENTIS (NVO) [Suspect]
     Indication: MACULAR DEGENERATION
  2. LUCENTIS (NVO) [Suspect]
     Dosage: UNK
     Dates: start: 20091022
  3. FORASEQ [Suspect]
     Route: 048

REACTIONS (2)
  - RETINAL ARTERY OCCLUSION [None]
  - VISUAL ACUITY REDUCED [None]
